FAERS Safety Report 9088254 (Version 1)
Quarter: 2013Q1

REPORT INFORMATION
  Report Type: Report from Study
  Country: US (occurrence: US)
  Receive Date: 20130201
  Receipt Date: 20130201
  Transmission Date: 20140127
  Serious: No
  Sender: FDA-Public Use
  Company Number: US-ABBOTT-12P-163-1024542-00

PATIENT
  Age: 45 Year
  Sex: Female
  Weight: 72.64 kg

DRUGS (4)
  1. HUMIRA [Suspect]
     Indication: RHEUMATOID ARTHRITIS
     Dates: start: 20121218
  2. DAPRO [Concomitant]
     Indication: RHEUMATOID ARTHRITIS
  3. MARINOL [Concomitant]
     Indication: PAIN
  4. LEXAPRO [Concomitant]
     Indication: ANXIETY

REACTIONS (2)
  - Headache [Recovering/Resolving]
  - Pain [Recovering/Resolving]
